FAERS Safety Report 8524189-8 (Version None)
Quarter: 2012Q3

REPORT INFORMATION
  Report Type: 
  Country: None (occurrence: None)
  Receive Date: 20120720
  Receipt Date: 20120716
  Transmission Date: 20120928
  Serious: Yes (Death, Other)
  Sender: FDA-Public Use
  Company Number: US-PFIZER INC-2012156685

PATIENT
  Sex: Female

DRUGS (1)
  1. REVATIO [Suspect]
     Indication: PULMONARY HYPERTENSION
     Dosage: 20 MG, 3X/DAY
     Route: 048
     Dates: start: 20090915

REACTIONS (17)
  - PULMONARY HYPERTENSION [None]
  - CLAUSTROPHOBIA [None]
  - BREATH SOUNDS ABNORMAL [None]
  - CARDIAC ARREST [None]
  - HYPOXIA [None]
  - CHEST PAIN [None]
  - DYSPNOEA [None]
  - RESPIRATORY DISTRESS [None]
  - GRAND MAL CONVULSION [None]
  - PULMONARY OEDEMA [None]
  - RIGHT VENTRICULAR FAILURE [None]
  - TACHYPNOEA [None]
  - PNEUMOTHORAX [None]
  - PULMONARY EMBOLISM [None]
  - LEFT VENTRICULAR DYSFUNCTION [None]
  - BRADYCARDIA [None]
  - SINUS TACHYCARDIA [None]
